FAERS Safety Report 6218876-4 (Version None)
Quarter: 2009Q2

REPORT INFORMATION
  Report Type: 
  Country: None (occurrence: None)
  Receive Date: 20090608
  Receipt Date: 20090603
  Transmission Date: 20091009
  Serious: No
  Sender: FDA-Public Use
  Company Number: US-B.I. PHARMACEUTICALS,INC./RIDGEFIELD-2009-BP-06394BP

PATIENT
  Age: 9 Year
  Sex: Male

DRUGS (4)
  1. CATAPRES-TTS-1 [Suspect]
     Indication: HYPERTENSION
     Dosage: .2MG
     Route: 062
     Dates: start: 20030101
  2. PROGRAF [Concomitant]
  3. ENALAPRIL [Concomitant]
  4. PREDNISONE [Concomitant]

REACTIONS (1)
  - APPLICATION SITE SCAB [None]
